FAERS Safety Report 8388389-2 (Version None)
Quarter: 2012Q2

REPORT INFORMATION
  Report Type: 
  Country: None (occurrence: None)
  Receive Date: 20120525
  Receipt Date: 20120514
  Transmission Date: 20120825
  Serious: Yes (Hospitalization, Other)
  Sender: FDA-Public Use
  Company Number: CH-ELI_LILLY_AND_COMPANY-CH201205005141

PATIENT
  Age: 49 Year
  Sex: Female

DRUGS (22)
  1. MIMPARA                            /01735301/ [Concomitant]
     Dosage: 60 MG, QD
     Route: 048
     Dates: start: 20110928, end: 20111110
  2. DIAZEPAM [Concomitant]
     Dosage: 20 MG, QD
     Route: 048
     Dates: start: 20110928, end: 20111106
  3. ZYPREXA [Suspect]
     Dosage: 10 MG, QD
     Route: 048
     Dates: start: 20111102, end: 20111103
  4. DIAZEPAM [Concomitant]
     Dosage: 13.3 MG, QD
     Route: 048
     Dates: start: 20111129, end: 20111129
  5. DIAZEPAM [Concomitant]
     Dosage: 8.3 MG, QD
     Route: 048
     Dates: start: 20111202, end: 20111202
  6. ZYPREXA [Suspect]
     Dosage: 20 MG, QD
     Route: 048
     Dates: start: 20111007, end: 20111101
  7. DIAZEPAM [Concomitant]
     Dosage: 11.6 MG, QD
     Route: 048
     Dates: start: 20111130, end: 20111130
  8. DIAZEPAM [Concomitant]
     Dosage: 10 MG, QD
     Route: 048
     Dates: start: 20111201, end: 20111201
  9. HALDOL [Concomitant]
     Dosage: 5 MG, QD
     Route: 048
     Dates: start: 20111101, end: 20111101
  10. DEPAKENE [Concomitant]
     Dosage: 1000 MG, QD
     Route: 048
     Dates: start: 20111020, end: 20111110
  11. HALDOL [Concomitant]
     Dosage: 7.5 MG, QD
     Route: 048
     Dates: start: 20111008, end: 20111019
  12. HALDOL [Concomitant]
     Dosage: 15 MG, QD
     Route: 048
     Dates: start: 20111020, end: 20111028
  13. HALDOL [Concomitant]
     Dosage: 10 MG, QD
     Route: 048
     Dates: start: 20111030, end: 20111030
  14. CLOZAPINE [Concomitant]
     Indication: PSYCHOTIC DISORDER
     Dosage: UNK
     Route: 048
     Dates: start: 20111027
  15. ZYPREXA [Suspect]
     Dosage: 20 MG, QD
     Route: 048
     Dates: start: 20111104, end: 20111110
  16. DIAZEPAM [Concomitant]
     Dosage: 15 MG, QD
     Route: 048
     Dates: start: 20111107, end: 20111128
  17. HALDOL [Concomitant]
     Dosage: 12.5 MG, QD
     Route: 048
     Dates: start: 20111029, end: 20111029
  18. HALDOL [Concomitant]
     Dosage: 2.5 MG, QD
     Route: 048
     Dates: start: 20111102, end: 20111102
  19. CLOZAPINE [Concomitant]
  20. ZYPREXA [Suspect]
     Dosage: 15 MG, QD
     Route: 048
     Dates: start: 20110928, end: 20111006
  21. DEPAKENE [Concomitant]
     Dosage: 500 MG, QD
     Route: 048
     Dates: start: 20110928, end: 20111019
  22. HALDOL [Concomitant]
     Dosage: 7.5 MG, QD
     Route: 048
     Dates: start: 20111031, end: 20111031

REACTIONS (6)
  - PARATHYROID TUMOUR BENIGN [None]
  - VOMITING [None]
  - PANCYTOPENIA [None]
  - RENAL FAILURE [None]
  - SOMNOLENCE [None]
  - HYPERCALCAEMIA [None]
